FAERS Safety Report 8781800 (Version 1)
Quarter: 2012Q4

REPORT INFORMATION
  Report Type: 
  Country: US (occurrence: US)
  Receive Date: 20120913
  Receipt Date: 20120913
  Transmission Date: 20130627
  Serious: No
  Sender: FDA-Public Use
  Company Number: US-009507513-1209USA004292

PATIENT

DRUGS (1)
  1. IMPLANON [Suspect]
     Dosage: 1 DF, UNK
     Dates: start: 20110919

REACTIONS (1)
  - Depression [Unknown]
